FAERS Safety Report 5913590-4 (Version None)
Quarter: 2008Q4

REPORT INFORMATION
  Report Type: 
  Country: None (occurrence: None)
  Receive Date: 20081009
  Receipt Date: 20080926
  Transmission Date: 20090506
  Serious: Yes (Other)
  Sender: FDA-Public Use
  Company Number: GB-BAYER-200812756BNE

PATIENT
  Sex: Female

DRUGS (2)
  1. MIRENA [Suspect]
     Indication: CONTRACEPTION
     Route: 015
  2. ZOLADEX [Concomitant]
     Indication: BREAST CANCER

REACTIONS (2)
  - BREAST CANCER [None]
  - NO ADVERSE EVENT [None]
